FAERS Safety Report 12911620 (Version 1)
Quarter: 2016Q4

REPORT INFORMATION
  Report Type: Spontaneous
  Country: US (occurrence: US)
  Receive Date: 20161104
  Receipt Date: 20161104
  Transmission Date: 20170207
  Serious: No
  Sender: FDA-Public Use
  Company Number: US-GALDERMA-US16005430

PATIENT
  Age: 25 Year
  Sex: Female

DRUGS (5)
  1. AVEENO ULTRA CALMING MOISTURIZER [Concomitant]
     Indication: DRY SKIN PROPHYLAXIS
     Route: 061
     Dates: start: 201502
  2. ACZONE [Concomitant]
     Active Substance: DAPSONE
     Indication: ACNE
     Dates: start: 201608
  3. EPIDUO FORTE [Suspect]
     Active Substance: ADAPALENE\BENZOYL PEROXIDE
     Indication: ACNE
     Dosage: 0.3%/2.5% (ADAPALENE AND BENZOYL PEROXIDE)
     Route: 061
     Dates: start: 20160803, end: 20160805
  4. BOSCIA DETOXIFYING BLACK CLEANSER [Concomitant]
     Indication: THERAPEUTIC SKIN CARE TOPICAL
     Route: 061
     Dates: start: 201602
  5. LAURA MERCIER^S FLAWLESS SKIN OIL FREE FOAMING CLEANSER [Concomitant]
     Indication: THERAPEUTIC SKIN CARE TOPICAL
     Route: 061
     Dates: start: 201604

REACTIONS (7)
  - Dermatitis allergic [Recovered/Resolved]
  - Application site erythema [Recovered/Resolved]
  - Swelling face [Recovered/Resolved]
  - Photosensitivity reaction [Recovered/Resolved]
  - Application site inflammation [Recovered/Resolved]
  - Application site exfoliation [Recovered/Resolved]
  - Application site pruritus [Recovered/Resolved]

NARRATIVE: CASE EVENT DATE: 20160803
